FAERS Safety Report 15898198 (Version 2)
Quarter: 2019Q2

REPORT INFORMATION
  Report Type: Report from Study
  Country: US (occurrence: US)
  Receive Date: 20190201
  Receipt Date: 20190408
  Transmission Date: 20190711
  Serious: Yes (Other)
  Sender: FDA-Public Use
  Company Number: US-BIOGEN-2019BI00690659

PATIENT
  Sex: Female

DRUGS (1)
  1. AVONEX [Suspect]
     Active Substance: INTERFERON BETA-1A
     Indication: MULTIPLE SCLEROSIS
     Route: 050
     Dates: start: 20180425

REACTIONS (11)
  - Feeling drunk [Unknown]
  - Fatigue [Unknown]
  - Thyroid disorder [Unknown]
  - Vomiting [Unknown]
  - Multiple sclerosis [Unknown]
  - Balance disorder [Unknown]
  - Headache [Unknown]
  - Asthenia [Unknown]
  - Diabetes mellitus [Unknown]
  - Sleep apnoea syndrome [Unknown]
  - Nausea [Unknown]
